FAERS Safety Report 7150609-X (Version None)
Quarter: 2010Q4

REPORT INFORMATION
  Report Type: 
  Country: None (occurrence: None)
  Receive Date: 20101210
  Receipt Date: 20101206
  Transmission Date: 20110411
  Serious: Yes (Other)
  Sender: FDA-Public Use
  Company Number: US-PFIZER INC-2010165263

PATIENT
  Sex: Female
  Weight: 57.143 kg

DRUGS (1)
  1. CLINDAMYCIN PHOSPHATE [Suspect]
     Indication: VAGINITIS BACTERIAL
     Dosage: UNK
     Route: 067
     Dates: start: 20090101, end: 20101129

REACTIONS (3)
  - DEPRESSION [None]
  - IRRITABILITY [None]
  - PRURITUS [None]
